FAERS Safety Report 18931172 (Version 2)
Quarter: 2021Q2

REPORT INFORMATION
  Report Type: Spontaneous
  Country: US (occurrence: US)
  Receive Date: 20210224
  Receipt Date: 20210615
  Transmission Date: 20210717
  Serious: No
  Sender: FDA-Public Use
  Company Number: US-GLAXOSMITHKLINE-US2021049951

PATIENT
  Sex: Female

DRUGS (4)
  1. BENLYSTA [Suspect]
     Active Substance: BELIMUMAB
     Indication: SJOGREN^S SYNDROME
     Dosage: UNK
     Dates: start: 202004
  2. BENLYSTA [Suspect]
     Active Substance: BELIMUMAB
  3. BENLYSTA [Suspect]
     Active Substance: BELIMUMAB
     Indication: SJOGREN^S SYNDROME
     Dosage: UNK
     Dates: end: 202104
  4. COVID 19 VACCINE [Concomitant]
     Indication: PROPHYLAXIS
     Dosage: UNK

REACTIONS (7)
  - Lichen planus [Unknown]
  - Product dose omission issue [Unknown]
  - Product use in unapproved indication [Unknown]
  - Off label use [Unknown]
  - Drug eruption [Unknown]
  - Rash [Unknown]
  - Hypersensitivity [Unknown]
